FAERS Safety Report 16567640 (Version 1)
Quarter: 2019Q3

REPORT INFORMATION
  Report Type: Spontaneous
  Country: FR (occurrence: FR)
  Receive Date: 20190712
  Receipt Date: 20190712
  Transmission Date: 20191004
  Serious: Yes (Hospitalization)
  Sender: FDA-Public Use
  Company Number: FR-MYLANLABS-2019M1064325

PATIENT
  Age: 68 Year
  Sex: Male
  Weight: 97 kg

DRUGS (12)
  1. YERVOY [Suspect]
     Active Substance: IPILIMUMAB
     Indication: MALIGNANT MELANOMA
     Dosage: 1 DOSAGE FORM
     Route: 041
     Dates: start: 201702
  2. ASPIRINE [Concomitant]
     Active Substance: ASPIRIN
  3. SIMVASTATINE [Concomitant]
     Active Substance: SIMVASTATIN
  4. FUROSEMIDE. [Suspect]
     Active Substance: FUROSEMIDE
     Indication: PRODUCT USED FOR UNKNOWN INDICATION
     Route: 048
     Dates: end: 20170328
  5. AMLODIPINE [Concomitant]
     Active Substance: AMLODIPINE BESYLATE
  6. VITAMINE D3 B.O.N. [Concomitant]
     Active Substance: CHOLECALCIFEROL
  7. URAPIDIL [Concomitant]
     Active Substance: URAPIDIL
  8. KAYEXALATE [Concomitant]
     Active Substance: SODIUM POLYSTYRENE SULFONATE
  9. PARACETAMOL [Concomitant]
     Active Substance: ACETAMINOPHEN
  10. FEBUXOSTAT. [Concomitant]
     Active Substance: FEBUXOSTAT
  11. VOGALENE [Concomitant]
     Active Substance: METOPIMAZINE
  12. NEBIVOLOL. [Concomitant]
     Active Substance: NEBIVOLOL

REACTIONS (2)
  - Acute kidney injury [Recovered/Resolved]
  - General physical health deterioration [Recovered/Resolved]

NARRATIVE: CASE EVENT DATE: 20170328
